FAERS Safety Report 19635929 (Version 1)
Quarter: 2021Q3

REPORT INFORMATION
  Report Type: Spontaneous
  Country: DE (occurrence: DE)
  Receive Date: 20210730
  Receipt Date: 20210730
  Transmission Date: 20211014
  Serious: Yes (Death, Other)
  Sender: FDA-Public Use
  Company Number: DE-PFIZER INC-202100930693

PATIENT
  Age: 42 Month
  Sex: Female

DRUGS (2)
  1. METHOTREXATE SODIUM. [Suspect]
     Active Substance: METHOTREXATE SODIUM
     Indication: AUTOINFLAMMATORY DISEASE
     Dosage: 12.5 MG/M2, WEEKLY
  2. PREDNISOLONE. [Suspect]
     Active Substance: PREDNISOLONE
     Indication: AUTOINFLAMMATORY DISEASE
     Dosage: 0.16 MG/KG, 1X/DAY

REACTIONS (3)
  - Off label use [Unknown]
  - COVID-19 [Fatal]
  - Disease progression [Fatal]
